FAERS Safety Report 7006589-0 (Version None)
Quarter: 2010Q3

REPORT INFORMATION
  Report Type: 
  Country: None (occurrence: None)
  Receive Date: 20100921
  Receipt Date: 20100921
  Transmission Date: 20110219
  Serious: Yes (Hospitalization)
  Sender: FDA-Public Use
  Company Number: None

PATIENT
  Age: 81 Year
  Sex: Female
  Weight: 55 kg

DRUGS (1)
  1. OMNIPAQUE 350 [Suspect]
     Indication: SCAN WITH CONTRAST
     Dosage: 125ML ONCE IV
     Route: 042
     Dates: start: 20100608, end: 20100608

REACTIONS (2)
  - HYPOTENSION [None]
  - URTICARIA [None]
